FAERS Safety Report 8594814 (Version 4)
Quarter: 2014Q2

REPORT INFORMATION
  Report Type: Spontaneous
  Country: US (occurrence: US)
  Receive Date: 20120604
  Receipt Date: 20140523
  Transmission Date: 20141212
  Serious: Yes (Other)
  Sender: FDA-Public Use
  Company Number: US-ASTRAZENECA-2012SE32844

PATIENT
  Age: 22754 Day
  Sex: Female
  Weight: 99.8 kg

DRUGS (2)
  1. ATACAND HCT [Suspect]
     Route: 048
  2. TOPROL XL [Suspect]
     Indication: BLOOD PRESSURE ABNORMAL
     Route: 048

REACTIONS (9)
  - Foot fracture [Unknown]
  - Pharyngitis streptococcal [Unknown]
  - Bronchitis [Unknown]
  - Aphonia [Unknown]
  - Malaise [Unknown]
  - Cough [Not Recovered/Not Resolved]
  - Anxiety [Unknown]
  - Asthenia [Unknown]
  - Drug dose omission [Not Recovered/Not Resolved]
